FAERS Safety Report 10128430 (Version 4)
Quarter: 2015Q3

REPORT INFORMATION
  Report Type: Spontaneous
  Country: US (occurrence: US)
  Receive Date: 20140428
  Receipt Date: 20150810
  Transmission Date: 20151125
  Serious: No
  Sender: FDA-Public Use
  Company Number: US-009507513-1404USA009080

PATIENT
  Age: 11 Year
  Sex: Male

DRUGS (2)
  1. ASMANEX [Suspect]
     Active Substance: MOMETASONE FUROATE
     Indication: ASTHMA
     Dosage: ONE INHALATION AT NIGHT (1 STANDARD DOSE OF 30)
     Route: 055
     Dates: start: 2010
  2. ASMANEX [Suspect]
     Active Substance: MOMETASONE FUROATE
     Dosage: ONE INHALATION AT NIGHT
     Route: 055

REACTIONS (7)
  - Product quality issue [Unknown]
  - Hypersensitivity [Unknown]
  - Drug dose omission [Unknown]
  - Product quality issue [Unknown]
  - Cough [Unknown]
  - Dyspnoea [Unknown]
  - Drug dose omission [Unknown]

NARRATIVE: CASE EVENT DATE: 2014
